FAERS Safety Report 10175905 (Version 1)
Quarter: 2014Q2

REPORT INFORMATION
  Report Type: Spontaneous
  Country: JP (occurrence: JP)
  Receive Date: 20140516
  Receipt Date: 20140516
  Transmission Date: 20141212
  Serious: Yes (Hospitalization, Other)
  Sender: FDA-Public Use
  Company Number: PHHY2014JP058368

PATIENT
  Sex: Male

DRUGS (2)
  1. DIOVAN [Suspect]
     Indication: HYPERTENSION
     Dosage: UNK UKN, UNK
     Route: 048
  2. DIOVAN [Suspect]
     Dosage: UNK UKN, UNK (HALF OF PRIOR DOSE)
     Route: 048

REACTIONS (7)
  - Loss of consciousness [Recovered/Resolved]
  - Arterial rupture [Unknown]
  - Lip injury [Unknown]
  - Fall [Unknown]
  - Syncope [Unknown]
  - Joint injury [Unknown]
  - Injury [Unknown]
